FAERS Safety Report 4980701-7 (Version None)
Quarter: 2006Q2

REPORT INFORMATION
  Report Type: 
  Country: None (occurrence: None)
  Receive Date: 20060424
  Receipt Date: 20060104
  Transmission Date: 20061013
  Serious: Yes (Hospitalization)
  Sender: FDA-Public Use
  Company Number: US-MERCK-0601USA00376

PATIENT
  Age: 55 Year
  Sex: Male
  Weight: 86 kg

DRUGS (10)
  1. VIOXX [Suspect]
     Indication: GOUT
     Route: 048
     Dates: start: 20000701, end: 20030101
  2. VIOXX [Suspect]
     Route: 048
     Dates: start: 20000701, end: 20030101
  3. VIOXX [Suspect]
     Route: 048
     Dates: start: 20000701, end: 20030101
  4. VIOXX [Suspect]
     Route: 048
     Dates: start: 20000701, end: 20030101
  5. LOTENSIN [Concomitant]
     Route: 065
  6. ASPIRIN [Concomitant]
     Route: 048
     Dates: start: 19900101, end: 20060101
  7. ZOCOR [Concomitant]
     Route: 065
     Dates: start: 19920201, end: 20020201
  8. ALLOPURINOL MSD [Concomitant]
     Route: 065
  9. INDOMETHACIN [Concomitant]
     Route: 065
  10. ATENOLOL [Concomitant]
     Route: 065

REACTIONS (1)
  - MYOCARDIAL INFARCTION [None]
